FAERS Safety Report 5283209-7 (Version None)
Quarter: 2007Q2

REPORT INFORMATION
  Report Type: 
  Country: None (occurrence: None)
  Receive Date: 20070402
  Receipt Date: 20070326
  Transmission Date: 20071010
  Serious: Yes (Other)
  Sender: FDA-Public Use
  Company Number: AU-GLAXOSMITHKLINE-B0460520A

PATIENT
  Age: 56 Year
  Sex: Female
  Weight: 76.6 kg

DRUGS (5)
  1. REPREVE [Suspect]
     Indication: RESTLESS LEGS SYNDROME
     Dosage: .25MG PER DAY
     Route: 048
  2. LEXAPRO [Concomitant]
     Indication: DEPRESSION
     Dosage: 10MG PER DAY
     Route: 048
  3. METFORMIN [Concomitant]
     Dosage: 1G THREE TIMES PER DAY
     Route: 048
  4. TIBOLONE [Concomitant]
     Indication: POSTMENOPAUSE
     Dosage: 2.5MG PER DAY
     Route: 048
  5. PANTOPRAZOLE SODIUM [Concomitant]
     Indication: ILL-DEFINED DISORDER
     Dosage: 40MG PER DAY
     Route: 048

REACTIONS (3)
  - EYE PAIN [None]
  - GLAUCOMA [None]
  - INTRAOCULAR PRESSURE INCREASED [None]
